FAERS Safety Report 12469023 (Version 1)
Quarter: 2016Q2

REPORT INFORMATION
  Report Type: Spontaneous
  Country: US (occurrence: US)
  Receive Date: 20160615
  Receipt Date: 20160615
  Transmission Date: 20160815
  Serious: Yes (Other)
  Sender: FDA-Public Use
  Company Number: US-PFIZER INC-2016294269

PATIENT
  Age: 21 Year
  Sex: Male

DRUGS (3)
  1. VANCOMYCIN [Concomitant]
     Active Substance: VANCOMYCIN
     Indication: ENDOCARDITIS
     Dosage: UNK
  2. GENTAMICIN SULFATE. [Suspect]
     Active Substance: GENTAMICIN SULFATE
     Indication: ENDOCARDITIS
     Dosage: UNK
  3. NAFCILLIN [Concomitant]
     Active Substance: NAFCILLIN\NAFCILLIN SODIUM
     Dosage: UNK

REACTIONS (1)
  - Bradycardia [Recovering/Resolving]
